FAERS Safety Report 8058892-3 (Version None)
Quarter: 2012Q1

REPORT INFORMATION
  Report Type: 
  Country: None (occurrence: None)
  Receive Date: 20120120
  Receipt Date: 20111010
  Transmission Date: 20120608
  Serious: No
  Sender: FDA-Public Use
  Company Number: US-BRISTOL-MYERS SQUIBB COMPANY-16158925

PATIENT
  Age: 5 Decade
  Sex: Male

DRUGS (1)
  1. YERVOY [Suspect]
     Dosage: YERVOY INFUSION.

REACTIONS (1)
  - NEUROPATHY PERIPHERAL [None]
